FAERS Safety Report 25307746 (Version 2)
Quarter: 2025Q2

REPORT INFORMATION
  Report Type: Spontaneous
  Country: US (occurrence: None)
  Receive Date: 20250513
  Receipt Date: 20250605
  Transmission Date: 20250716
  Serious: No
  Sender: INCYTE
  Company Number: US-INCYTE CORPORATION-2025IN005085

PATIENT

DRUGS (1)
  1. JAKAFI [Suspect]
     Active Substance: RUXOLITINIB
     Indication: Myelofibrosis
     Dosage: 5 MILLIGRAM, BID

REACTIONS (6)
  - Mental disorder [Unknown]
  - General physical health deterioration [Unknown]
  - Abdominal distension [Unknown]
  - Weight increased [Unknown]
  - Constipation [Unknown]
  - Diarrhoea [Unknown]
